FAERS Safety Report 24314478 (Version 1)
Quarter: 2024Q3

REPORT INFORMATION
  Report Type: Spontaneous
  Country: GB (occurrence: GB)
  Receive Date: 20240913
  Receipt Date: 20240913
  Transmission Date: 20241017
  Serious: Yes (Death, Hospitalization)
  Sender: AMGEN
  Company Number: GB-AMGEN-GBRSP2024181171

PATIENT
  Age: 75 Year
  Sex: Female

DRUGS (1)
  1. ARANESP [Suspect]
     Active Substance: DARBEPOETIN ALFA
     Indication: Renal failure
     Dosage: 100 MICROGRAM, Q4WK (100MCG/0.5ML PFS)
     Route: 058

REACTIONS (2)
  - Death [Fatal]
  - Hospitalisation [Unknown]

NARRATIVE: CASE EVENT DATE: 20240909
